FAERS Safety Report 13112992 (Version 1)
Quarter: 2017Q1

REPORT INFORMATION
  Report Type: Spontaneous
  Country: US (occurrence: US)
  Receive Date: 20170112
  Receipt Date: 20170112
  Transmission Date: 20170428
  Serious: Yes (Hospitalization)
  Sender: FDA-Public Use
  Company Number: None

PATIENT
  Age: 64 Year
  Sex: Female
  Weight: 41.7 kg

DRUGS (2)
  1. PALBOCICLIB [Suspect]
     Active Substance: PALBOCICLIB
     Indication: SQUAMOUS CELL CARCINOMA OF HEAD AND NECK
     Dosage: 100 MG QD DAYS 1-21 PO
     Route: 048
     Dates: start: 20160921, end: 20161220
  2. CETUXIMAB. [Suspect]
     Active Substance: CETUXIMAB
     Indication: SQUAMOUS CELL CARCINOMA OF HEAD AND NECK
     Dosage: 250 MG/M2 WEEKLY IV
     Route: 042
     Dates: start: 20160921, end: 20161221

REACTIONS (20)
  - Refusal of treatment by patient [None]
  - Neutropenia [None]
  - Malaise [None]
  - Asthenia [None]
  - Blood calcium decreased [None]
  - Computerised tomogram abdomen abnormal [None]
  - Discomfort [None]
  - Blood potassium decreased [None]
  - Oral pain [None]
  - Oropharyngeal pain [None]
  - Haemoglobin decreased [None]
  - Weight decreased [None]
  - Dysphagia [None]
  - Device difficult to use [None]
  - Thrombocytopenia [None]
  - Dehydration [None]
  - Fatigue [None]
  - Fall [None]
  - Feeding disorder [None]
  - Superior mesenteric artery syndrome [None]

NARRATIVE: CASE EVENT DATE: 20161227
